FAERS Safety Report 6293453-8 (Version None)
Quarter: 2009Q3

REPORT INFORMATION
  Report Type: 
  Country: None (occurrence: None)
  Receive Date: 20090803
  Receipt Date: 20090729
  Transmission Date: 20100115
  Serious: No
  Sender: FDA-Public Use
  Company Number: US-ASTRAZENECA-2009UW21485

PATIENT
  Age: 81 Year
  Sex: Female

DRUGS (2)
  1. TOPROL-XL [Suspect]
     Indication: HYPERTENSION
     Route: 048
     Dates: start: 20090101
  2. TOPROL-XL [Suspect]
     Route: 048
     Dates: start: 20090401

REACTIONS (1)
  - HYPOTENSION [None]
